FAERS Safety Report 11981826 (Version 2)
Quarter: 2016Q2

REPORT INFORMATION
  Report Type: Spontaneous
  Country: US (occurrence: US)
  Receive Date: 20160201
  Receipt Date: 20160516
  Transmission Date: 20160815
  Serious: No
  Sender: FDA-Public Use
  Company Number: US-ASTRAZENECA-2016SE07187

PATIENT
  Sex: Female

DRUGS (1)
  1. CRESTOR [Suspect]
     Active Substance: ROSUVASTATIN CALCIUM
     Dosage: UNKONWN
     Route: 048

REACTIONS (4)
  - Hypersensitivity [Unknown]
  - Swelling [Unknown]
  - Adverse reaction [Unknown]
  - Arthralgia [Unknown]
